FAERS Safety Report 6760489-X (Version None)
Quarter: 2010Q2

REPORT INFORMATION
  Report Type: 
  Country: None (occurrence: None)
  Receive Date: 20100604
  Receipt Date: 20080814
  Transmission Date: 20101027
  Serious: Yes (Hospitalization, Disabling, Other)
  Sender: FDA-Public Use
  Company Number: 2008BH008689

PATIENT
  Age: 10 Month
  Sex: Male
  Weight: 12.3 kg

DRUGS (2)
  1. ADVATE [Suspect]
     Indication: HAEMOPHILIA
     Dosage: 500 IU ; EVERY WEEK ; IV
     Route: 042
     Dates: start: 20080612
  2. ADVATE [Suspect]
     Indication: PROPHYLAXIS
     Dosage: 500 IU ; EVERY WEEK ; IV
     Route: 042
     Dates: start: 20080612

REACTIONS (2)
  - FACTOR VIII INHIBITION [None]
  - HAEMOGLOBIN DECREASED [None]
